FAERS Safety Report 22170856 (Version 2)
Quarter: 2023Q2

REPORT INFORMATION
  Report Type: Spontaneous
  Country: FR (occurrence: FR)
  Receive Date: 20230404
  Receipt Date: 20230411
  Transmission Date: 20230721
  Serious: Yes (Other)
  Sender: FDA-Public Use
  Company Number: FR-GSKCCFEMEA-Case-01700154_AE-69111

PATIENT

DRUGS (2)
  1. NUCALA [Suspect]
     Active Substance: MEPOLIZUMAB
     Indication: Asthma
     Dosage: 100 MG
  2. NUCALA [Suspect]
     Active Substance: MEPOLIZUMAB
     Indication: Pulmonary eosinophilia

REACTIONS (8)
  - Haematemesis [Unknown]
  - Vomiting [Unknown]
  - Abdominal pain [Unknown]
  - Diarrhoea [Unknown]
  - Gastritis [Unknown]
  - Ulcer [Unknown]
  - Abdominal discomfort [Unknown]
  - Abdominal pain upper [Unknown]
